FAERS Safety Report 9521494 (Version 1)
Quarter: 2013Q1

REPORT INFORMATION
  Report Type: Spontaneous
  Country: US (occurrence: None)
  Receive Date: 20130305
  Receipt Date: 20130305
  Transmission Date: 20140127
  Serious: Yes (Hospitalization)
  Sender: FDA-Public Use
  Company Number: 163-21880-12022245

PATIENT
  Age: 63 Year
  Sex: Female

DRUGS (12)
  1. REVLIMID [Suspect]
     Indication: PLASMA CELL MYELOMA
     Dosage: 10 MG, ON TUESDAY, THURSDAY, AND SATURDAY, PO
     Route: 048
     Dates: start: 20100110
  2. ASPIRIN (ACETYLSALICYLIC ACID) (UNKNOWN) (ACETYLSALICYLIC ACID) [Concomitant]
  3. CHLOR (CHLORPHENAMINE MALEATE) (TABLETS) [Concomitant]
  4. HYDRALAZINE (HYDRALAZINE) (UNKNOWN) [Concomitant]
  5. LEVOTHYROXINE (LEVOTHYROXINE) (UNKNOWN) [Concomitant]
  6. LIBRAX (LIBRAX) (UNKNOWN) [Concomitant]
  7. METOPROLOL (METOPROLOL) (UNKNOWN) [Concomitant]
  8. SENNA (SENNA) (UNKNOWN) [Concomitant]
  9. SIMVATATIN (SIMVASTATIN) (UNKNOWN) [Concomitant]
  10. SPIRONOLACTONE (SPIRONOLACTONE) (UNKNOWN) [Concomitant]
  11. WELLBUTRIN (BUPROPION HYDROCHLORIDE) (UNKNOWN) [Concomitant]
  12. XANAX (ALPRAZOLAM) (UNKNOWN) [Concomitant]

REACTIONS (3)
  - Influenza like illness [None]
  - Dehydration [None]
  - Vomiting [None]
